FAERS Safety Report 9669682 (Version 1)
Quarter: 2013Q4

REPORT INFORMATION
  Report Type: Spontaneous
  Country: FR (occurrence: FR)
  Receive Date: 20131105
  Receipt Date: 20131105
  Transmission Date: 20140711
  Serious: Yes (Death, Other)
  Sender: FDA-Public Use
  Company Number: FR-BRISTOL-MYERS SQUIBB COMPANY-19692946

PATIENT
  Age: 51 Year
  Sex: Male

DRUGS (3)
  1. YERVOY [Suspect]
     Indication: METASTATIC MALIGNANT MELANOMA
     Dates: start: 20130802
  2. VEMURAFENIB [Concomitant]
  3. TEMODAL [Concomitant]

REACTIONS (3)
  - Malignant neoplasm progression [Fatal]
  - Thrombocytopenia [Unknown]
  - Anaemia [Unknown]
